FAERS Safety Report 8848332 (Version 3)
Quarter: 2012Q4

REPORT INFORMATION
  Report Type: 
  Country: JP (occurrence: JP)
  Receive Date: 20121019
  Receipt Date: 20121226
  Transmission Date: 20130627
  Serious: Yes (Death, Hospitalization)
  Sender: FDA-Public Use
  Company Number: JP-AMGEN-JPNSP2012066056

PATIENT
  Age: 82 Year
  Sex: Female
  Weight: 48 kg

DRUGS (6)
  1. VECTIBIX [Suspect]
     Indication: LARGE INTESTINE CARCINOMA
     Dosage: 235 mg, q2wk
     Route: 041
     Dates: start: 20120815, end: 20120829
  2. ELPLAT [Suspect]
     Dosage: 100 mg, q2wk
     Route: 041
     Dates: start: 20120815, end: 20120829
  3. 5 FU [Suspect]
     Dosage: 450 mg, twice in two weeks
     Route: 040
     Dates: start: 20120815, end: 20120830
  4. 5 FU [Suspect]
     Dosage: 700 mg, q2wk
     Dates: start: 20120815, end: 20120831
  5. MAGMITT [Concomitant]
     Dosage: UNK
     Route: 048
  6. ISOVORIN                           /00566702/ [Concomitant]
     Dosage: 125 mg, twice in two weeks
     Route: 041
     Dates: start: 20120815, end: 20120830

REACTIONS (3)
  - Duodenal ulcer perforation [Fatal]
  - Systemic inflammatory response syndrome [Unknown]
  - Disseminated intravascular coagulation [Unknown]
